FAERS Safety Report 14094374 (Version 3)
Quarter: 2017Q4

REPORT INFORMATION
  Report Type: Spontaneous
  Country: JP (occurrence: JP)
  Receive Date: 20171016
  Receipt Date: 20171206
  Transmission Date: 20180321
  Serious: Yes (Hospitalization, Other)
  Sender: FDA-Public Use
  Company Number: JP-PFIZER INC-2017441047

PATIENT
  Age: 53 Year
  Sex: Female
  Weight: 130 kg

DRUGS (4)
  1. PRECEDEX [Suspect]
     Active Substance: DEXMEDETOMIDINE HYDROCHLORIDE
     Indication: LOCAL ANAESTHESIA
     Dosage: 0.7 UG/KG/H
     Route: 042
     Dates: start: 20170921, end: 20170921
  2. OLIVES K [Suspect]
     Active Substance: LIDOCAINE HYDROCHLORIDE
     Indication: ANALGESIC THERAPY
     Dosage: 330 MG, UNK
     Route: 041
     Dates: start: 20170921, end: 20170921
  3. PRECEDEX [Suspect]
     Active Substance: DEXMEDETOMIDINE HYDROCHLORIDE
     Indication: SEDATION
     Dosage: 6 UG/KG/H
     Route: 042
     Dates: start: 20170921, end: 20170921
  4. PROPOFOL. [Suspect]
     Active Substance: PROPOFOL
     Indication: SEDATION
     Dosage: 20 MG X 4 AND 30 MG X 2
     Route: 042
     Dates: start: 20170921, end: 20170921

REACTIONS (4)
  - Pancreatitis [Recovered/Resolved]
  - Pneumonia [Recovered/Resolved]
  - Product use issue [Unknown]
  - Therapeutic response decreased [Unknown]

NARRATIVE: CASE EVENT DATE: 20170921
